FAERS Safety Report 11806215 (Version 6)
Quarter: 2016Q2

REPORT INFORMATION
  Report Type: Report from Study
  Country: US (occurrence: US)
  Receive Date: 20151207
  Receipt Date: 20160414
  Transmission Date: 20160815
  Serious: Yes (Other)
  Sender: FDA-Public Use
  Company Number: US-BAYER-2015-475735

PATIENT
  Age: 77 Year
  Sex: Female

DRUGS (5)
  1. STIVARGA [Suspect]
     Active Substance: REGORAFENIB
     Indication: COLON CANCER
     Dosage: 80 MG, QD
     Route: 048
     Dates: start: 20151220
  2. STIVARGA [Suspect]
     Active Substance: REGORAFENIB
     Indication: RECTAL CANCER
     Dosage: 160 MG, QD FOR FIRST 21 DAYS OF EACH 28 DAY CYCLE
     Route: 048
  3. STIVARGA [Suspect]
     Active Substance: REGORAFENIB
     Indication: COLON CANCER
     Dosage: 80 MG, QD
     Route: 048
  4. STIVARGA [Suspect]
     Active Substance: REGORAFENIB
     Indication: COLON CANCER
     Dosage: 160 MG, QD
     Route: 048
     Dates: start: 201511
  5. STIVARGA [Suspect]
     Active Substance: REGORAFENIB
     Indication: COLON CANCER
     Dosage: 120 MG, QD
     Route: 048
     Dates: start: 20151031

REACTIONS (28)
  - Dysuria [None]
  - Asthenia [Not Recovered/Not Resolved]
  - Erythema [None]
  - Weight decreased [Not Recovered/Not Resolved]
  - Panic attack [None]
  - Rash [Recovering/Resolving]
  - Vomiting [None]
  - Drug dose omission [None]
  - Pruritus [Not Recovered/Not Resolved]
  - Skin disorder [None]
  - Diarrhoea [None]
  - Rash [None]
  - Fatigue [Not Recovered/Not Resolved]
  - Skin exfoliation [None]
  - Neuropathy peripheral [None]
  - Pain in extremity [Recovering/Resolving]
  - Vomiting [None]
  - Rash [None]
  - Burning sensation [None]
  - Nausea [None]
  - Skin wrinkling [Not Recovered/Not Resolved]
  - Colostomy [None]
  - Pain [None]
  - Feeling abnormal [None]
  - Dry skin [None]
  - Exercise tolerance decreased [Not Recovered/Not Resolved]
  - Skin induration [None]
  - Constipation [Recovering/Resolving]

NARRATIVE: CASE EVENT DATE: 201511
